FAERS Safety Report 13084778 (Version 1)
Quarter: 2017Q1

REPORT INFORMATION
  Report Type: Spontaneous
  Country: US (occurrence: US)
  Receive Date: 20170104
  Receipt Date: 20170104
  Transmission Date: 20170428
  Serious: Yes (Hospitalization)
  Sender: FDA-Public Use
  Company Number: US-TARO-2016TAR01063

PATIENT
  Age: 69 Year
  Sex: Male
  Weight: 100.68 kg

DRUGS (2)
  1. FLUOCINONIDE CREAM USP 0.1% [Suspect]
     Active Substance: FLUOCINONIDE
     Indication: BACK PAIN
     Dosage: 0.1 %, 1X/DAY AT BEDTIME
     Route: 061
     Dates: start: 201610, end: 2016
  2. FLUOCINONIDE CREAM USP 0.1% [Suspect]
     Active Substance: FLUOCINONIDE
     Indication: PAIN IN EXTREMITY

REACTIONS (3)
  - Off label use [Unknown]
  - Depression [Not Recovered/Not Resolved]
  - Chest pain [Unknown]

NARRATIVE: CASE EVENT DATE: 201612
